FAERS Safety Report 11047362 (Version 1)
Quarter: 2015Q2

REPORT INFORMATION
  Report Type: Report from Study
  Country: BR (occurrence: BR)
  Receive Date: 20150420
  Receipt Date: 20150420
  Transmission Date: 20150821
  Serious: Yes (Other)
  Sender: FDA-Public Use
  Company Number: PHHY2015BR016092

PATIENT
  Sex: Female

DRUGS (1)
  1. ACLASTA [Suspect]
     Active Substance: ZOLEDRONIC ACID
     Indication: OSTEOPOROSIS
     Dosage: 5 MG, ONCE YEARLY
     Route: 042
     Dates: start: 2013

REACTIONS (14)
  - Malaise [Recovering/Resolving]
  - Skin atrophy [Recovering/Resolving]
  - Peripheral swelling [Recovering/Resolving]
  - Eating disorder [Recovering/Resolving]
  - Temperature intolerance [Recovering/Resolving]
  - Hepatomegaly [Recovering/Resolving]
  - Spinal pain [Unknown]
  - Gait disturbance [Unknown]
  - Bedridden [Recovering/Resolving]
  - Erythema [Recovering/Resolving]
  - Erysipelas [Recovering/Resolving]
  - Skin burning sensation [Unknown]
  - Rash [Recovering/Resolving]
  - Pain in extremity [Recovering/Resolving]
